FAERS Safety Report 8101616-1 (Version None)
Quarter: 2012Q1

REPORT INFORMATION
  Report Type: 
  Country: None (occurrence: None)
  Receive Date: 20120129
  Receipt Date: 20111011
  Transmission Date: 20120608
  Serious: No
  Sender: FDA-Public Use
  Company Number: US-ABBOTT-11P-163-0863223-00

PATIENT
  Age: 71 Year
  Sex: Male

DRUGS (10)
  1. FLOMAX [Concomitant]
     Indication: PROSTATIC DISORDER
  2. CYMBALTA [Concomitant]
     Indication: DEPRESSION
  3. ARICEPT [Concomitant]
     Indication: AMNESIA
  4. LORAZEPAM [Concomitant]
     Indication: ANXIETY
  5. HUMIRA [Suspect]
     Indication: RHEUMATOID ARTHRITIS
     Dates: start: 20111010
  6. ENABLEX [Concomitant]
     Indication: PRODUCT USED FOR UNKNOWN INDICATION
  7. VYTORIN [Concomitant]
     Indication: PRODUCT USED FOR UNKNOWN INDICATION
  8. UNKNOWN MEDICATION [Concomitant]
     Indication: HYPERTENSION
  9. PLAVIX [Concomitant]
     Indication: PRODUCT USED FOR UNKNOWN INDICATION
  10. DESYREL [Concomitant]
     Indication: INSOMNIA
     Dosage: AT BEDTIME

REACTIONS (1)
  - PAIN [None]
